FAERS Safety Report 18774582 (Version 1)
Quarter: 2021Q1

REPORT INFORMATION
  Report Type: Spontaneous
  Country: US (occurrence: US)
  Receive Date: 20210122
  Receipt Date: 20210122
  Transmission Date: 20210419
  Serious: Yes (Other)
  Sender: FDA-Public Use
  Company Number: US-ASTRAZENECA-2021A009156

PATIENT
  Sex: Female

DRUGS (4)
  1. IRON [Concomitant]
     Active Substance: IRON
  2. MAGNESIUM [Concomitant]
     Active Substance: MAGNESIUM
  3. DIAZEPAM. [Concomitant]
     Active Substance: DIAZEPAM
  4. NEXIUM [Suspect]
     Active Substance: ESOMEPRAZOLE MAGNESIUM
     Dosage: 40.0MG UNKNOWN
     Route: 048

REACTIONS (4)
  - Tremor [Unknown]
  - Dehydration [Unknown]
  - Pollakiuria [Unknown]
  - Renal impairment [Unknown]
